FAERS Safety Report 4690222-7 (Version None)
Quarter: 2005Q2

REPORT INFORMATION
  Report Type: 
  Country: None (occurrence: None)
  Receive Date: 20050613
  Receipt Date: 20050523
  Transmission Date: 20051028
  Serious: No
  Sender: FDA-Public Use
  Company Number: USA050495477

PATIENT
  Age: 57 Year
  Sex: Male
  Weight: 78 kg

DRUGS (7)
  1. STRATTERA [Suspect]
     Dosage: 80 MG DAY
     Route: 048
     Dates: start: 20030410, end: 20040901
  2. PRINIVIL [Concomitant]
  3. SINGULAIR (MONTELUKAST) [Concomitant]
  4. ADVAIR [Concomitant]
  5. RHINOCORT (BUIDESONIDE) [Concomitant]
  6. ZYRTEC [Concomitant]
  7. TYLENOL W/ CODEINE NO. 4 [Concomitant]

REACTIONS (3)
  - ALANINE AMINOTRANSFERASE INCREASED [None]
  - ASPARTATE AMINOTRANSFERASE INCREASED [None]
  - PROTHROMBIN TIME SHORTENED [None]
